FAERS Safety Report 8426034-8 (Version None)
Quarter: 2012Q2

REPORT INFORMATION
  Report Type: 
  Country: None (occurrence: None)
  Receive Date: 20120611
  Receipt Date: 20120530
  Transmission Date: 20120825
  Serious: Yes (Other)
  Sender: FDA-Public Use
  Company Number: US-SANOFI-AVENTIS-2012SA039103

PATIENT
  Age: 62 Year
  Sex: Male

DRUGS (3)
  1. GLIMEPIRIDE [Suspect]
     Dates: start: 19940101
  2. GLIPIZIDE [Concomitant]
     Dates: start: 20100101
  3. GLIMEPIRIDE [Suspect]

REACTIONS (2)
  - BLOOD GLUCOSE INCREASED [None]
  - CORONARY ARTERY OCCLUSION [None]
